FAERS Safety Report 5389384-8 (Version None)
Quarter: 2007Q3

REPORT INFORMATION
  Report Type: 
  Country: None (occurrence: None)
  Receive Date: 20070717
  Receipt Date: 20070706
  Transmission Date: 20080115
  Serious: Yes (Other)
  Sender: FDA-Public Use
  Company Number: CO-ROCHE-506182

PATIENT
  Age: 56 Year
  Sex: Female

DRUGS (5)
  1. BONIVA [Suspect]
     Indication: OSTEOPOROSIS
     Route: 048
     Dates: start: 20070504, end: 20070504
  2. ZINTREPID [Concomitant]
     Indication: HYPERCHOLESTEROLAEMIA
     Route: 048
  3. CITRACAL [Concomitant]
     Route: 048
  4. ZOLPIDEM TARTRATE [Concomitant]
     Indication: SLEEP DISORDER THERAPY
     Route: 048
  5. EUTIROX [Concomitant]
     Route: 048

REACTIONS (3)
  - CONSTIPATION [None]
  - DYSPNOEA [None]
  - RASH [None]
